FAERS Safety Report 22133859 (Version 4)
Quarter: 2024Q4

REPORT INFORMATION
  Report Type: Spontaneous
  Country: DE (occurrence: DE)
  Receive Date: 20230324
  Receipt Date: 20241104
  Transmission Date: 20250115
  Serious: Yes (Hospitalization, Other)
  Sender: CELLTRION
  Company Number: DE-CELLTRION INC.-2023DE005842

PATIENT

DRUGS (19)
  1. BEVACIZUMAB [Suspect]
     Active Substance: BEVACIZUMAB
     Indication: Product used for unknown indication
     Dosage: 637.5 MG EVERY 3 WEEKS
     Route: 042
     Dates: start: 20220622, end: 20230126
  2. BEVACIZUMAB [Suspect]
     Active Substance: BEVACIZUMAB
     Dosage: 637.5 MG EVERY 3 WEEKS; ON 05/JAN/2023 DATE OF MOST RECENT DOSE OF BEVACIZUMAB PRIOR TO AE/SAE
     Route: 042
     Dates: start: 20230105
  3. CAPECITABINE [Suspect]
     Active Substance: CAPECITABINE
     Indication: Product used for unknown indication
     Dosage: 1000 MG BID
     Route: 048
     Dates: start: 20220622, end: 20230126
  4. CAPECITABINE [Suspect]
     Active Substance: CAPECITABINE
     Dosage: 1000 MG BID, ON 05/JAN/2023 DATE OF MOST RECENT DOSE OF CAPECITABINE PRIOR TO AE/SAE
     Route: 048
     Dates: start: 20230105
  5. LEUCOVORIN CALCIUM [Suspect]
     Active Substance: LEUCOVORIN CALCIUM
     Indication: Neoplasm malignant
     Dosage: UNK, Q2WEEKS
     Route: 042
     Dates: start: 20230301
  6. LEUCOVORIN CALCIUM [Suspect]
     Active Substance: LEUCOVORIN CALCIUM
     Dosage: 840 MG, MOST RECENT DOSE
     Route: 042
     Dates: end: 20230418
  7. AFLIBERCEPT [Suspect]
     Active Substance: AFLIBERCEPT
     Indication: Neoplasm malignant
     Dosage: UNK, Q2WEEKS
     Route: 042
     Dates: start: 20230301
  8. AFLIBERCEPT [Suspect]
     Active Substance: AFLIBERCEPT
     Dosage: 336 MG, MOST RECENT DOSE
     Route: 042
     Dates: end: 20230418
  9. IRINOTECAN [Suspect]
     Active Substance: IRINOTECAN
     Indication: Neoplasm malignant
     Dosage: 238.5 MG, MOST RECENT DOSE
     Route: 042
     Dates: end: 20230418
  10. IRINOTECAN [Suspect]
     Active Substance: IRINOTECAN
     Dosage: UNK, Q2WEEKS
     Route: 042
     Dates: start: 20230418
  11. FLUOROURACIL [Suspect]
     Active Substance: FLUOROURACIL
     Indication: Neoplasm malignant
     Dosage: 3780 MG
     Route: 042
     Dates: end: 20230418
  12. FLUOROURACIL [Suspect]
     Active Substance: FLUOROURACIL
     Dosage: UNK, Q2WEEKS/MOST RECENT DOSE
     Route: 042
     Dates: start: 20230301
  13. LEUCOVORIN [Suspect]
     Active Substance: LEUCOVORIN\LEUCOVORIN CALCIUM
     Indication: Product used for unknown indication
     Dosage: 840 MG EVERY 2 WEEKS/DOSE OF LAST ADMINISTERED PRIOR TO AE/SAE ONSET 840 MG DATE OF MOST RECENT DOSE
     Route: 042
     Dates: start: 20230301, end: 20230418
  14. LOPERAMIDE [Concomitant]
     Active Substance: LOPERAMIDE
     Dosage: 2 MG, AS NECESSARY
     Route: 065
     Dates: start: 20220615
  15. METOCLOPRAMIDE [Concomitant]
     Active Substance: METOCLOPRAMIDE
     Dosage: 20 MG, QD/ 1-0-1/ 10 MG 2 TIMES IN 1 DAY
     Route: 065
     Dates: start: 20220316
  16. CYANOCOBALAMIN;PYRIDOXINE HYDROCHLORIDE [Concomitant]
     Dosage: UNK
     Route: 065
     Dates: start: 20211223
  17. SELENIUM [Concomitant]
     Active Substance: SELENIUM
     Dosage: 100 MG, QD
     Route: 065
     Dates: start: 20220316
  18. CHOLECALCIFEROL [Concomitant]
     Active Substance: CHOLECALCIFEROL
     Dosage: EVERY 1 WEEK, 1 TIMES IN 1 WEEK/20.000 IE
     Route: 065
     Dates: start: 20211223
  19. ONDANSETRON [Concomitant]
     Active Substance: ONDANSETRON
     Dosage: 8 MG, AS NECESSARY
     Route: 065
     Dates: start: 20220316

REACTIONS (2)
  - Cholecystitis [Recovered/Resolved]
  - Cholecystitis [Recovered/Resolved]

NARRATIVE: CASE EVENT DATE: 20230110
